FAERS Safety Report 11072017 (Version 1)
Quarter: 2015Q2

REPORT INFORMATION
  Report Type: Spontaneous
  Country: US (occurrence: None)
  Receive Date: 20150427
  Receipt Date: 20150427
  Transmission Date: 20150821
  Serious: No
  Sender: FDA-Public Use
  Company Number: None

PATIENT
  Age: 64 Year
  Sex: Female

DRUGS (1)
  1. BOTOX [Suspect]
     Active Substance: ONABOTULINUMTOXINA
     Indication: MIGRAINE

REACTIONS (6)
  - Swelling [None]
  - Insomnia [None]
  - Neck pain [None]
  - Discomfort [None]
  - Injection site reaction [None]
  - Vision blurred [None]

NARRATIVE: CASE EVENT DATE: 20150418
